FAERS Safety Report 7920458-0 (Version None)
Quarter: 2011Q4

REPORT INFORMATION
  Report Type: 
  Country: None (occurrence: None)
  Receive Date: 20111117
  Receipt Date: 20111109
  Transmission Date: 20120403
  Serious: Yes (Other)
  Sender: FDA-Public Use
  Company Number: PHHY2011BR20986

PATIENT
  Sex: Female

DRUGS (9)
  1. MONUROL [Interacting]
     Indication: URINARY TRACT INFECTION
     Dosage: 8 MG, UNK
  2. EXELON [Interacting]
     Dosage: 6 MG, BID
     Route: 048
  3. EXELON [Interacting]
     Dosage: 6 MG, QD
  4. MEMANTINE HYDROCHLORIDE [Concomitant]
     Indication: DEMENTIA ALZHEIMER'S TYPE
     Dosage: 10 MG, QD
  5. EXELON [Interacting]
     Dosage: 3 MG, BID
  6. EXELON [Interacting]
     Dosage: 4.5 MG, BID
  7. EXELON [Suspect]
     Indication: DEMENTIA ALZHEIMER'S TYPE
     Dosage: 1.5 MG, BID
     Route: 048
  8. EXELON [Interacting]
     Dosage: 3 MG, QD
  9. EXELON [Interacting]
     Dosage: 4.5 MG, QD

REACTIONS (7)
  - LABYRINTHITIS [None]
  - DRUG INTERACTION [None]
  - DEMENTIA ALZHEIMER'S TYPE [None]
  - ABDOMINAL PAIN [None]
  - HEADACHE [None]
  - DIZZINESS [None]
  - URINARY TRACT INFECTION [None]
